FAERS Safety Report 24294389 (Version 1)
Quarter: 2024Q3

REPORT INFORMATION
  Report Type: Spontaneous
  Country: US (occurrence: US)
  Receive Date: 20240906
  Receipt Date: 20240906
  Transmission Date: 20241017
  Serious: No
  Sender: LEXICON PHARMACEUTICALS
  Company Number: US-LEX-000452

PATIENT
  Age: 70 Year
  Sex: Female

DRUGS (9)
  1. INPEFA [Suspect]
     Active Substance: SOTAGLIFLOZIN
     Indication: Product used for unknown indication
     Route: 048
     Dates: start: 20240403
  2. PRASUGREL [Concomitant]
     Active Substance: PRASUGREL
  3. MELOXICAM [Concomitant]
     Active Substance: MELOXICAM
  4. BUPROPION [Concomitant]
     Active Substance: BUPROPION
  5. FLUOXETINE [Concomitant]
     Active Substance: FLUOXETINE HYDROCHLORIDE
  6. TRAMADOL [Concomitant]
     Active Substance: TRAMADOL\TRAMADOL HYDROCHLORIDE
  7. ROSUVASTATIN [Concomitant]
     Active Substance: ROSUVASTATIN\ROSUVASTATIN CALCIUM
  8. METOPROLOL SUCCINATE [Concomitant]
     Active Substance: METOPROLOL SUCCINATE
  9. ALBUTEROL [Concomitant]
     Active Substance: ALBUTEROL

REACTIONS (1)
  - Fungal infection [Unknown]

NARRATIVE: CASE EVENT DATE: 20240820
